FAERS Safety Report 21865831 (Version 1)
Quarter: 2023Q1

REPORT INFORMATION
  Report Type: Report from Study
  Country: MX (occurrence: MX)
  Receive Date: 20230116
  Receipt Date: 20230116
  Transmission Date: 20230417
  Serious: Yes (Other)
  Sender: FDA-Public Use
  Company Number: MX-002147023-NVSC2023MX008441

PATIENT
  Age: 73 Year
  Sex: Female
  Weight: 81 kg

DRUGS (1)
  1. EXFORGE [Suspect]
     Active Substance: AMLODIPINE BESYLATE\VALSARTAN
     Indication: Hypertension
     Dosage: 1 DOSAGE FORM, QD (BY MOUTH)
     Route: 048
     Dates: start: 20221216

REACTIONS (5)
  - Foot fracture [Not Recovered/Not Resolved]
  - Tibia fracture [Not Recovered/Not Resolved]
  - Fibula fracture [Not Recovered/Not Resolved]
  - Gait inability [Unknown]
  - Fall [Unknown]

NARRATIVE: CASE EVENT DATE: 20221228
